FAERS Safety Report 5879914-1 (Version None)
Quarter: 2008Q3

REPORT INFORMATION
  Report Type: 
  Country: None (occurrence: None)
  Receive Date: 20080912
  Receipt Date: 20080901
  Transmission Date: 20090109
  Serious: Yes (Death)
  Sender: FDA-Public Use
  Company Number: SE-ELI_LILLY_AND_COMPANY-SE200809000092

PATIENT
  Sex: Male

DRUGS (3)
  1. BYETTA [Suspect]
     Dosage: 10 UG, 2/D
     Route: 065
  2. LANTUS [Concomitant]
     Dosage: 10+0+50 IU/D
  3. NOVORAPID [Concomitant]
     Dosage: 14+14+14 IU/D

REACTIONS (1)
  - DEATH [None]
